FAERS Safety Report 9610670 (Version 3)
Quarter: 2013Q4

REPORT INFORMATION
  Report Type: Report from Study
  Country: US (occurrence: US)
  Receive Date: 20131009
  Receipt Date: 20131030
  Transmission Date: 20140711
  Serious: Yes (Other)
  Sender: FDA-Public Use
  Company Number: US-US-EMD SERONO, INC.-7241898

PATIENT
  Sex: Female

DRUGS (2)
  1. NOVANTRONE [Suspect]
     Indication: MULTIPLE SCLEROSIS
     Dates: start: 20070419, end: 20081024
  2. BETASERON                          /01229701/ [Concomitant]
     Indication: MULTIPLE SCLEROSIS
     Dates: start: 20080202, end: 20081116

REACTIONS (1)
  - Meningioma [Recovering/Resolving]
